FAERS Safety Report 22169784 (Version 1)
Quarter: 2023Q2

REPORT INFORMATION
  Report Type: Spontaneous
  Country: NL (occurrence: NL)
  Receive Date: 20230404
  Receipt Date: 20230404
  Transmission Date: 20230721
  Serious: Yes (Life-Threatening, Other)
  Sender: FDA-Public Use
  Company Number: NL-LRB-00871117

PATIENT
  Sex: Female
  Weight: 88 kg

DRUGS (1)
  1. LAMOTRIGINE [Suspect]
     Active Substance: LAMOTRIGINE
     Indication: Myotonia congenita
     Dosage: 25 MILLIGRAM, ONCE A DAY,(1X PER DAG 1 STUK)
     Route: 065
     Dates: start: 20220203, end: 20220310

REACTIONS (3)
  - Myalgia [Unknown]
  - Oral candidiasis [Unknown]
  - Lymphadenopathy [Unknown]
